FAERS Safety Report 9434879 (Version 1)
Quarter: 2013Q3

REPORT INFORMATION
  Report Type: Spontaneous
  Country: GB (occurrence: GB)
  Receive Date: 20130801
  Receipt Date: 20130801
  Transmission Date: 20140515
  Serious: Yes (Other)
  Sender: FDA-Public Use
  Company Number: GB-TEVA-420712ISR

PATIENT
  Age: 88 Year
  Sex: Male
  Weight: 80 kg

DRUGS (17)
  1. RAMIPRIL [Suspect]
     Dates: start: 20130318
  2. LANSOPRAZOLE [Concomitant]
     Dates: start: 20130318, end: 20130604
  3. DIGOXIN [Concomitant]
     Dates: start: 20130318, end: 20130701
  4. SIMVASTATIN [Concomitant]
     Dates: start: 20130318, end: 20130701
  5. TAMSULOSIN HYDROCHLORIDE [Concomitant]
     Dates: start: 20130318, end: 20130701
  6. METFORMIN [Concomitant]
     Dates: start: 20130318, end: 20130701
  7. OILATUM [Concomitant]
     Dates: start: 20130318, end: 20130415
  8. BISOPROLOL [Concomitant]
     Dates: start: 20130318, end: 20130701
  9. ALVERINE CITRATE [Concomitant]
     Dates: start: 20130318, end: 20130623
  10. DOUBLEBASE [Concomitant]
     Dates: start: 20130408
  11. WARFARIN SODIUM [Concomitant]
     Dates: start: 20130411, end: 20130701
  12. ULTRABASE [Concomitant]
     Dates: start: 20130411, end: 20130704
  13. HYDROXYZINE [Concomitant]
     Dates: start: 20130411, end: 20130625
  14. CALCIPOTRIOL [Concomitant]
     Dates: start: 20130417, end: 20130418
  15. NOVOMIX [Concomitant]
     Dates: start: 20130507
  16. HYDROCORTISONE [Concomitant]
     Dates: start: 20130628, end: 20130705
  17. FLUCLOXACILLIN [Concomitant]
     Dates: start: 20130628, end: 20130705

REACTIONS (2)
  - Pemphigoid [Not Recovered/Not Resolved]
  - Dermatitis bullous [Not Recovered/Not Resolved]
